FAERS Safety Report 16056602 (Version 1)
Quarter: 2019Q1

REPORT INFORMATION
  Report Type: Spontaneous
  Country: CH (occurrence: CH)
  Receive Date: 20190311
  Receipt Date: 20190311
  Transmission Date: 20190418
  Serious: Yes (Other)
  Sender: FDA-Public Use
  Company Number: CH-ROCHE-2278047

PATIENT
  Age: 2 Year
  Sex: Female

DRUGS (13)
  1. KEPPRA [Suspect]
     Active Substance: LEVETIRACETAM
     Route: 048
     Dates: start: 201902
  2. CEFUROXIM [Suspect]
     Active Substance: CEFUROXIME
     Indication: INFLUENZA
     Route: 042
     Dates: start: 20190129, end: 20190130
  3. VITAMIN D3 [Concomitant]
     Active Substance: CHOLECALCIFEROL
     Route: 065
  4. METRONIDAZOLE. [Concomitant]
     Active Substance: METRONIDAZOLE
  5. VANCOMYCIN [Concomitant]
     Active Substance: VANCOMYCIN
  6. TAMIFLU [Suspect]
     Active Substance: OSELTAMIVIR PHOSPHATE
     Indication: INFLUENZA
     Route: 042
     Dates: start: 20190129, end: 20190130
  7. EUTHYROX [Concomitant]
     Active Substance: LEVOTHYROXINE SODIUM
     Route: 065
  8. CEFEPIME [Concomitant]
     Active Substance: CEFEPIME HYDROCHLORIDE
  9. SOLU-MEDROL [Concomitant]
     Active Substance: METHYLPREDNISOLONE SODIUM SUCCINATE
     Route: 042
     Dates: start: 20190129, end: 20190131
  10. KEPPRA [Suspect]
     Active Substance: LEVETIRACETAM
     Route: 048
     Dates: start: 20190128, end: 20190129
  11. BEN-U-RON [Suspect]
     Active Substance: ACETAMINOPHEN
     Indication: INFLUENZA
     Route: 065
     Dates: start: 20190129, end: 20190130
  12. KEPPRA [Suspect]
     Active Substance: LEVETIRACETAM
     Indication: INFLUENZA
     Route: 048
     Dates: start: 20190121, end: 20190126
  13. NEXIUM [Concomitant]
     Active Substance: ESOMEPRAZOLE MAGNESIUM
     Route: 065

REACTIONS (3)
  - Enterocolitis haemorrhagic [Recovering/Resolving]
  - Hepatitis [Recovering/Resolving]
  - Acute hepatic failure [Recovering/Resolving]

NARRATIVE: CASE EVENT DATE: 20190130
